FAERS Safety Report 8347920 (Version 2)
Quarter: 2013Q1

REPORT INFORMATION
  Report Type: Report from Study
  Country: US (occurrence: US)
  Receive Date: 20120123
  Receipt Date: 20130117
  Transmission Date: 20140127
  Serious: Yes (Other)
  Sender: FDA-Public Use
  Company Number: US-PFIZER INC-2011197606

PATIENT
  Age: 67 Year
  Sex: Male

DRUGS (20)
  1. LYRICA [Suspect]
     Indication: FIBROMYALGIA
     Dosage: 225 MG, 2X/DAY
  2. MS CONTIN [Concomitant]
     Dosage: 30 MG, UNK
  3. OXYCODONE [Concomitant]
     Dosage: 5 MG, UNK
  4. FLEXERIL [Concomitant]
     Dosage: 5 MG, UNK
  5. ANAFRANIL [Concomitant]
     Dosage: 75 MG, UNK
  6. RELAFEN [Concomitant]
     Dosage: 750 MG, UNK
  7. TRIAMCINOLONE [Concomitant]
     Dosage: 1 %, UNK
  8. ECONAZOLE NITRATE [Concomitant]
     Dosage: 1 %, UNK
  9. EPIPEN [Concomitant]
     Dosage: 0.3 MG, AS NEEDED
  10. VITAMINE C [Concomitant]
     Dosage: 1000 MG, UNK
  11. VITAMINE. D [Concomitant]
     Dosage: 1000 IU, UNK
  12. VITAMIN E [Concomitant]
     Dosage: 400 IU, UNK
  13. FISH OIL [Concomitant]
     Dosage: 1000 MG, UNK
  14. CALCIUM CITRATE [Concomitant]
     Dosage: 500 MG, UNK
  15. GLUCOSAMINE HCL/MSN [Concomitant]
     Dosage: 1500MG/1500MG
  16. ASPIRIN [Concomitant]
     Dosage: 81 MG, UNK
  17. COLAC [Concomitant]
     Dosage: 100 MG, UNK
  18. PERI-COLACE [Concomitant]
     Dosage: UNK
  19. SALONPAS LINIMENT [Concomitant]
     Dosage: UNK, AS NEEDED
  20. SOMBRA [Concomitant]
     Dosage: UNK, AS NEEDED

REACTIONS (1)
  - Memory impairment [Unknown]
